FAERS Safety Report 10086558 (Version 1)
Quarter: 2014Q2

REPORT INFORMATION
  Report Type: Spontaneous
  Country: GB (occurrence: GB)
  Receive Date: 20140418
  Receipt Date: 20140418
  Transmission Date: 20141212
  Serious: Yes (Other)
  Sender: FDA-Public Use
  Company Number: GB-WATSON-2014-07442

PATIENT
  Age: 5 Year
  Sex: Male

DRUGS (1)
  1. TRIMETHOPRIM (UNKNOWN) [Suspect]
     Indication: EAR INFECTION
     Dosage: 5 ML, DAILY
     Route: 048
     Dates: start: 20140312

REACTIONS (3)
  - Cough [Not Recovered/Not Resolved]
  - Oropharyngeal pain [Unknown]
  - Abdominal pain upper [Unknown]
